FAERS Safety Report 23342930 (Version 1)
Quarter: 2023Q4

REPORT INFORMATION
  Report Type: Spontaneous
  Country: CN (occurrence: None)
  Receive Date: 20231227
  Receipt Date: 20231227
  Transmission Date: 20240110
  Serious: Yes (Hospitalization)
  Sender: FDA-Public Use
  Company Number: 2023A288916

PATIENT
  Sex: Female
  Weight: 85 kg

DRUGS (1)
  1. ESOMEPRAZOLE SODIUM [Suspect]
     Active Substance: ESOMEPRAZOLE SODIUM
     Indication: Gastrointestinal mucosal disorder
     Route: 041
     Dates: start: 20231207, end: 20231211

REACTIONS (1)
  - Urticaria papular [Recovering/Resolving]

NARRATIVE: CASE EVENT DATE: 20231210
